FAERS Safety Report 4915878-2 (Version None)
Quarter: 2006Q1

REPORT INFORMATION
  Report Type: 
  Country: None (occurrence: None)
  Receive Date: 20060214
  Receipt Date: 20060203
  Transmission Date: 20060701
  Serious: Yes (Other)
  Sender: FDA-Public Use
  Company Number: 2006019408

PATIENT
  Age: 42 Year
  Sex: Male

DRUGS (6)
  1. DILANTIN [Suspect]
     Indication: CONVULSION
     Dosage: 600 MG (300 MG, 2 IN 1 D)
     Dates: start: 20060101
  2. LEXAPRO [Concomitant]
  3. PROTONIX [Concomitant]
  4. IBUPROFEN [Concomitant]
  5. MULTIVITAMIN [Concomitant]
  6. THIAMINE (THIAMINE) [Concomitant]

REACTIONS (1)
  - ANTICONVULSANT DRUG LEVEL ABNORMAL [None]
